FAERS Safety Report 12330899 (Version 2)
Quarter: 2016Q2

REPORT INFORMATION
  Report Type: Report from Study
  Country: CO (occurrence: CO)
  Receive Date: 20160504
  Receipt Date: 20160509
  Transmission Date: 20160815
  Serious: Yes (Death, Hospitalization)
  Sender: FDA-Public Use
  Company Number: PHHY2016CO060506

PATIENT
  Age: 63 Year
  Sex: Male
  Weight: 64 kg

DRUGS (2)
  1. VOTRIENT [Suspect]
     Active Substance: PAZOPANIB HYDROCHLORIDE
     Indication: RENAL NEOPLASM
     Dosage: 400 MG, QD
     Route: 048
     Dates: start: 20160203
  2. VOTRIENT [Suspect]
     Active Substance: PAZOPANIB HYDROCHLORIDE
     Indication: LUNG NEOPLASM

REACTIONS (7)
  - Hypokinesia [Unknown]
  - Respiratory failure [Fatal]
  - Off label use [Unknown]
  - General physical health deterioration [Unknown]
  - Fluid retention [Unknown]
  - Inflammation [Unknown]
  - Terminal state [Unknown]

NARRATIVE: CASE EVENT DATE: 20160203
